FAERS Safety Report 8340594-7 (Version None)
Quarter: 2012Q2

REPORT INFORMATION
  Report Type: 
  Country: None (occurrence: None)
  Receive Date: 20120507
  Receipt Date: 20120427
  Transmission Date: 20120825
  Serious: Yes (Death)
  Sender: FDA-Public Use
  Company Number: US-ROCHE-1048401

PATIENT
  Sex: Female
  Weight: 70.37 kg

DRUGS (7)
  1. TAXOL [Concomitant]
     Indication: LUNG NEOPLASM MALIGNANT
     Route: 042
     Dates: start: 20110324, end: 20110324
  2. BENADRYL [Concomitant]
     Dates: start: 20110324, end: 20110324
  3. ZOFRAN [Concomitant]
     Route: 042
     Dates: start: 20110324, end: 20110324
  4. ZANTAC [Concomitant]
     Route: 042
     Dates: start: 20110324, end: 20110324
  5. DECADRON [Concomitant]
     Route: 042
     Dates: start: 20110324, end: 20110324
  6. AVASTIN [Suspect]
     Indication: LUNG NEOPLASM MALIGNANT
     Route: 065
     Dates: start: 20110324, end: 20110324
  7. CARBOPLATIN [Concomitant]
     Indication: LUNG NEOPLASM MALIGNANT
     Route: 042
     Dates: start: 20110324, end: 20110324

REACTIONS (2)
  - LUNG NEOPLASM MALIGNANT [None]
  - RESPIRATORY FAILURE [None]
